FAERS Safety Report 6060525-2 (Version None)
Quarter: 2009Q1

REPORT INFORMATION
  Report Type: 
  Country: None (occurrence: None)
  Receive Date: 20090202
  Receipt Date: 20080126
  Transmission Date: 20090719
  Serious: Yes (Disabling)
  Sender: FDA-Public Use
  Company Number: BR-BAYER-200911563LA

PATIENT
  Age: 36 Year
  Sex: Female

DRUGS (3)
  1. BETAFERON [Suspect]
     Indication: MULTIPLE SCLEROSIS
     Route: 058
     Dates: start: 20061001, end: 20090110
  2. TOPIRAMATE [Concomitant]
     Indication: NERVOUS SYSTEM DISORDER
     Route: 048
     Dates: start: 20030101, end: 20081201
  3. TOPIRAMATE [Concomitant]
     Route: 048
     Dates: start: 20090101

REACTIONS (7)
  - DYSPNOEA [None]
  - FACIAL PAIN [None]
  - FEELING HOT [None]
  - HEADACHE [None]
  - MALAISE [None]
  - MYALGIA [None]
  - PYREXIA [None]
